FAERS Safety Report 8609723-1 (Version None)
Quarter: 2012Q3

REPORT INFORMATION
  Report Type: 
  Country: None (occurrence: None)
  Receive Date: 20120821
  Receipt Date: 20120814
  Transmission Date: 20120928
  Serious: Yes (Hospitalization)
  Sender: FDA-Public Use
  Company Number: PH-B.I. PHARMACEUTICALS,INC./RIDGEFIELD-2012-CS-01194RP

PATIENT
  Age: 45 Year
  Sex: Female

DRUGS (3)
  1. TRAJENTA [Suspect]
     Indication: DIABETES MELLITUS
     Dosage: 5 MG
     Route: 048
     Dates: start: 20120811
  2. IRBESARTAN [Concomitant]
  3. AMLODIPINE [Concomitant]

REACTIONS (2)
  - CHOKING [None]
  - DIZZINESS [None]
